FAERS Safety Report 13073956 (Version 2)
Quarter: 2017Q1

REPORT INFORMATION
  Report Type: Spontaneous
  Country: FR (occurrence: FR)
  Receive Date: 20161229
  Receipt Date: 20170202
  Transmission Date: 20170428
  Serious: Yes (Hospitalization, Other)
  Sender: FDA-Public Use
  Company Number: FR-ASTRAZENECA-2016SF36508

PATIENT
  Age: 22668 Day
  Sex: Female

DRUGS (2)
  1. BRILIQUE [Suspect]
     Active Substance: TICAGRELOR
     Route: 048
     Dates: start: 20160804
  2. ASPEGIC [Suspect]
     Active Substance: ASPIRIN DL-LYSINE
     Route: 048
     Dates: start: 20160803

REACTIONS (8)
  - Anaemia [Recovered/Resolved]
  - Gastric ulcer [Unknown]
  - Endometrial hypertrophy [Unknown]
  - Gastrointestinal angiodysplasia [Unknown]
  - Gastrointestinal haemorrhage [Recovered/Resolved]
  - Fibroma [Unknown]
  - Gastritis [Unknown]
  - Small intestinal haemorrhage [Unknown]

NARRATIVE: CASE EVENT DATE: 20160808
